FAERS Safety Report 13339612 (Version 1)
Quarter: 2017Q1

REPORT INFORMATION
  Report Type: Spontaneous
  Country: HU (occurrence: HU)
  Receive Date: 20170315
  Receipt Date: 20170315
  Transmission Date: 20170428
  Serious: Yes (Other)
  Sender: FDA-Public Use
  Company Number: HU-TEVA-748559ISR

PATIENT
  Age: 23 Year
  Sex: Female

DRUGS (8)
  1. PALIPERIDONE. [Concomitant]
     Active Substance: PALIPERIDONE
     Indication: PSYCHOMOTOR SKILLS IMPAIRED
     Dates: start: 2014, end: 201411
  2. CLOZAPINE. [Concomitant]
     Active Substance: CLOZAPINE
     Indication: SCHIZOPHRENIA
     Dates: start: 201411, end: 201505
  3. ARIPIPRAZOLE. [Suspect]
     Active Substance: ARIPIPRAZOLE
     Indication: PSYCHOMOTOR SKILLS IMPAIRED
     Route: 065
     Dates: start: 2014, end: 2014
  4. OLANZAPINE. [Suspect]
     Active Substance: OLANZAPINE
     Indication: PSYCHOMOTOR SKILLS IMPAIRED
     Route: 065
     Dates: start: 2014, end: 2014
  5. METHYLPREDNISOLONE. [Suspect]
     Active Substance: METHYLPREDNISOLONE
     Indication: ENCEPHALITIS AUTOIMMUNE
     Route: 065
     Dates: start: 201412, end: 201505
  6. AMISULPIRIDE [Concomitant]
     Indication: SCHIZOPHRENIA
     Dates: start: 201411, end: 201412
  7. AZATHIOPRINE. [Concomitant]
     Active Substance: AZATHIOPRINE
     Indication: ENCEPHALITIS AUTOIMMUNE
     Dates: start: 201501, end: 201606
  8. ARIPIPRAZOLE. [Concomitant]
     Active Substance: ARIPIPRAZOLE
     Indication: ENCEPHALITIS AUTOIMMUNE
     Dates: start: 2015, end: 2015

REACTIONS (5)
  - Drug ineffective [Unknown]
  - Skin striae [Recovered/Resolved]
  - Amenorrhoea [Recovered/Resolved]
  - Weight increased [Recovered/Resolved]
  - Face oedema [Recovered/Resolved]

NARRATIVE: CASE EVENT DATE: 2014
